FAERS Safety Report 4761403-9 (Version None)
Quarter: 2005Q3

REPORT INFORMATION
  Report Type: 
  Country: None (occurrence: None)
  Receive Date: 20050901
  Receipt Date: 20050823
  Transmission Date: 20060218
  Serious: Yes (Hospitalization)
  Sender: FDA-Public Use
  Company Number: HQWYE460620AUG04

PATIENT
  Age: 63 Year
  Sex: Female

DRUGS (8)
  1. PREMIQUE (CONJUGATED ESTROGENS/MEDROXYPROGESTERONE ACETATE, TABLET, ) [Suspect]
     Indication: HORMONE REPLACEMENT THERAPY
     Dosage: ORAL
     Route: 048
     Dates: start: 20030619, end: 20040826
  2. CLOBETASOL PROPIONATE (CLOBETASOL PROPIONATE) [Concomitant]
  3. CLOBETASOL PROPIONATE (CLOBETASOL PROPIONATE) [Concomitant]
  4. CLOBETASOL PROPIONATE (CLOBETASOL PROPIONATE) [Concomitant]
  5. CLOBETASOL PROPIONATE (CLOBETASOL PROPIONATE) [Concomitant]
  6. COD-LIVER OIL ^VITAGLOW^ (COD-LIVER OIL) [Concomitant]
  7. BECLOMETHASONE DIPROPIONATE [Concomitant]
  8. BECLOMETHASONE DIPROPIONATE [Concomitant]

REACTIONS (5)
  - ENDOMETRIAL SARCOMA [None]
  - HYPERPLASIA [None]
  - LIVER FUNCTION TEST ABNORMAL [None]
  - PROCEDURAL COMPLICATION [None]
  - UTERINE PERFORATION [None]
